FAERS Safety Report 24344032 (Version 2)
Quarter: 2024Q4

REPORT INFORMATION
  Report Type: Spontaneous
  Country: DE (occurrence: DE)
  Receive Date: 20240920
  Receipt Date: 20241025
  Transmission Date: 20250115
  Serious: Yes (Death)
  Sender: UCB
  Company Number: DE-UCBSA-2024046736

PATIENT

DRUGS (1)
  1. FINTEPLA [Suspect]
     Active Substance: FENFLURAMINE
     Indication: Product used for unknown indication
     Dosage: UNK
     Dates: start: 202303

REACTIONS (1)
  - Accident [Fatal]
